FAERS Safety Report 5038157-4 (Version None)
Quarter: 2006Q2

REPORT INFORMATION
  Report Type: 
  Country: None (occurrence: None)
  Receive Date: 20060622
  Receipt Date: 20060613
  Transmission Date: 20061013
  Serious: Yes (Other)
  Sender: FDA-Public Use
  Company Number: 2006075918

PATIENT
  Age: 59 Year
  Sex: Female

DRUGS (1)
  1. CORTEF [Suspect]
     Indication: ADRENAL DISORDER
     Dosage: 15 MG (7.5 MG, 2 IN 1 D), ORAL; YEARS - ONGOING
     Route: 048

REACTIONS (2)
  - ABSCESS [None]
  - APPENDICITIS PERFORATED [None]
